FAERS Safety Report 13451321 (Version 1)
Quarter: 2017Q2

REPORT INFORMATION
  Report Type: Spontaneous
  Country: US (occurrence: US)
  Receive Date: 20170418
  Receipt Date: 20170418
  Transmission Date: 20170830
  Serious: No
  Sender: FDA-Public Use
  Company Number: US-LUPIN PHARMACEUTICALS INC.-2016-03017

PATIENT
  Sex: Female

DRUGS (1)
  1. MY WAY [Suspect]
     Active Substance: LEVONORGESTREL
     Indication: CONTRACEPTION
     Dosage: 2 WEEKS AGO
     Route: 048

REACTIONS (3)
  - Polymenorrhoea [Unknown]
  - Peripheral swelling [Not Recovered/Not Resolved]
  - Breast pain [Not Recovered/Not Resolved]
